FAERS Safety Report 14657896 (Version 1)
Quarter: 2018Q1

REPORT INFORMATION
  Report Type: Spontaneous
  Country: US (occurrence: US)
  Receive Date: 20180320
  Receipt Date: 20180320
  Transmission Date: 20180509
  Serious: No
  Sender: FDA-Public Use
  Company Number: US-009507513-1803USA006318

PATIENT
  Age: 16 Year
  Sex: Female

DRUGS (1)
  1. NEXPLANON [Suspect]
     Active Substance: ETONOGESTREL
     Indication: CONTRACEPTION
     Dosage: 1 IMPLANT ONE TIME (EVERY 3 YEARS)
     Route: 059
     Dates: start: 20170607, end: 20180309

REACTIONS (1)
  - Menometrorrhagia [Unknown]

NARRATIVE: CASE EVENT DATE: 20180309
